FAERS Safety Report 8513921 (Version 9)
Quarter: 2013Q3

REPORT INFORMATION
  Report Type: Spontaneous
  Country: CA (occurrence: CA)
  Receive Date: 20120416
  Receipt Date: 20130912
  Transmission Date: 20140515
  Serious: Yes (Hospitalization, Other)
  Sender: FDA-Public Use
  Company Number: CA-ROCHE-GNE323280

PATIENT
  Age: 36 Year
  Sex: Female

DRUGS (9)
  1. XOLAIR [Suspect]
     Indication: ASTHMA
     Route: 058
     Dates: start: 20101221
  2. XOLAIR [Suspect]
     Route: 058
     Dates: start: 20121129
  3. ALVESCO [Concomitant]
  4. SYMBICORT [Concomitant]
  5. VENTOLIN [Concomitant]
  6. PREDNISONE [Concomitant]
  7. SPORANOX [Concomitant]
  8. UNIPHYL [Concomitant]
  9. AVELOX [Concomitant]
     Route: 065
     Dates: start: 20110805, end: 20110819

REACTIONS (6)
  - Lung infection [Not Recovered/Not Resolved]
  - Fatigue [Unknown]
  - Somnolence [Unknown]
  - Malaise [Unknown]
  - Nasopharyngitis [Unknown]
  - Influenza [Unknown]
